FAERS Safety Report 10201540 (Version 1)
Quarter: 2014Q2

REPORT INFORMATION
  Report Type: Spontaneous
  Country: DE (occurrence: DE)
  Receive Date: 20140528
  Receipt Date: 20140528
  Transmission Date: 20141212
  Serious: Yes (Other)
  Sender: FDA-Public Use
  Company Number: DE-ASTRAZENECA-2014SE35337

PATIENT
  Age: 45 Year
  Sex: Female

DRUGS (4)
  1. SEROQUEL [Suspect]
     Route: 048
     Dates: start: 20131227, end: 20131230
  2. SEROQUEL [Suspect]
     Route: 048
     Dates: start: 20140108, end: 20140109
  3. SEROQUEL [Suspect]
     Route: 048
     Dates: start: 20140110, end: 20140114
  4. SEROQUEL [Suspect]
     Route: 048
     Dates: start: 20140115, end: 20140119

REACTIONS (4)
  - Loss of consciousness [Recovered/Resolved]
  - Hypotension [Unknown]
  - Feeling abnormal [Recovered/Resolved]
  - Dizziness [Recovered/Resolved]
